FAERS Safety Report 4434423-1 (Version None)
Quarter: 2004Q3

REPORT INFORMATION
  Report Type: 
  Country: None (occurrence: None)
  Receive Date: 20040825
  Receipt Date: 20040806
  Transmission Date: 20050211
  Serious: Yes (Hospitalization, Other)
  Sender: FDA-Public Use
  Company Number: USA040772440

PATIENT
  Age: 81 Year
  Sex: Female
  Weight: 50 kg

DRUGS (1)
  1. FORTEO [Suspect]
     Indication: RHEUMATOID ARTHRITIS
     Dosage: 20 UG/1 DAY

REACTIONS (2)
  - BRONCHIAL CARCINOMA [None]
  - PNEUMONIA [None]
